FAERS Safety Report 7215673-8 (Version None)
Quarter: 2011Q1

REPORT INFORMATION
  Report Type: 
  Country: None (occurrence: None)
  Receive Date: 20110105
  Receipt Date: 20110105
  Transmission Date: 20110831
  Serious: Yes (Hospitalization)
  Sender: FDA-Public Use
  Company Number: None

PATIENT
  Age: 69 Year
  Sex: Male
  Weight: 76.7 kg

DRUGS (2)
  1. ATENOLOL [Suspect]
     Indication: HYPERTENSION
     Dosage: 12.5 MG BID PO
     Route: 048
     Dates: start: 20100201, end: 20100511
  2. FOSINOPRIL [Suspect]
     Indication: HYPERTENSION
     Dosage: 40 MG BID PO
     Route: 048
     Dates: start: 20100201, end: 20100511

REACTIONS (9)
  - SYNCOPE [None]
  - DIZZINESS [None]
  - BLOOD GLUCOSE INCREASED [None]
  - SINUS BRADYCARDIA [None]
  - HYPERKALAEMIA [None]
  - VOMITING [None]
  - BLOOD UREA INCREASED [None]
  - BLOOD CREATININE INCREASED [None]
  - NAUSEA [None]
